FAERS Safety Report 9300248 (Version 2)
Quarter: 2013Q3

REPORT INFORMATION
  Report Type: Spontaneous
  Country: US (occurrence: US)
  Receive Date: 20130521
  Receipt Date: 20130826
  Transmission Date: 20140515
  Serious: Yes (Hospitalization, Other)
  Sender: FDA-Public Use
  Company Number: US-JNJFOC-20130506406

PATIENT
  Sex: Male
  Weight: 75.3 kg

DRUGS (4)
  1. RISPERDAL [Suspect]
     Indication: BIPOLAR DISORDER
     Dosage: 1 MG AND 2 MG, ONCE A DAY
     Route: 048
     Dates: start: 2004, end: 20100226
  2. ALBUTEROL [Concomitant]
     Indication: ASTHMA
     Dosage: SINCE THE PATIENT WAS BORN
     Route: 065
  3. ALBUTEROL [Concomitant]
     Indication: ASTHMA
     Dosage: SINCE THE PATIENT WAS BORN
     Route: 065
  4. NEURONTIN [Concomitant]
     Indication: NEUROPATHY PERIPHERAL
     Route: 065

REACTIONS (2)
  - Circumcision [Unknown]
  - Anorgasmia [Not Recovered/Not Resolved]
